FAERS Safety Report 7162288-6 (Version None)
Quarter: 2010Q4

REPORT INFORMATION
  Report Type: 
  Country: None (occurrence: None)
  Receive Date: 20101215
  Receipt Date: 20101207
  Transmission Date: 20110411
  Serious: Yes (Hospitalization, Disabling)
  Sender: FDA-Public Use
  Company Number: JP-ASTRAZENECA-2010SE58105

PATIENT
  Age: 60 Year
  Sex: Female

DRUGS (5)
  1. CRESTOR [Suspect]
     Indication: HYPERCHOLESTEROLAEMIA
     Route: 048
     Dates: start: 20090119, end: 20101203
  2. PALUX [Suspect]
     Dosage: 250 ML DAILY 3 TIMES/WEEK DIV
     Route: 041
     Dates: end: 20101203
  3. PRIMPERAN TAB [Suspect]
     Dosage: 6T/DAY
     Route: 048
     Dates: end: 20101203
  4. MUCODYNE [Suspect]
     Dosage: 3T/DAY
     Route: 048
     Dates: end: 20101203
  5. EURAX [Concomitant]
     Dosage: DOSE UNKNOWN
     Route: 061
     Dates: end: 20101203

REACTIONS (3)
  - DIZZINESS [None]
  - DYSARTHRIA [None]
  - GAIT DISTURBANCE [None]
